FAERS Safety Report 9272048 (Version 5)
Quarter: 2019Q3

REPORT INFORMATION
  Report Type: Spontaneous
  Country: US (occurrence: US)
  Receive Date: 20130506
  Receipt Date: 20190919
  Transmission Date: 20191005
  Serious: Yes (Other)
  Sender: FDA-Public Use
  Company Number: US-ASTRAZENECA-2013SE27459

PATIENT
  Sex: Female

DRUGS (35)
  1. PROTONIX [Suspect]
     Active Substance: PANTOPRAZOLE SODIUM
     Indication: GASTROOESOPHAGEAL REFLUX DISEASE
     Route: 065
     Dates: start: 2015, end: 2018
  2. LISINOPRIL. [Concomitant]
     Active Substance: LISINOPRIL
  3. CLOPIDOGREL [Concomitant]
     Active Substance: CLOPIDOGREL BISULFATE
  4. FENOFIBRATE. [Concomitant]
     Active Substance: FENOFIBRATE
  5. POTASSIUM [Concomitant]
     Active Substance: POTASSIUM
  6. TUMS [Concomitant]
     Active Substance: CALCIUM CARBONATE
     Indication: ABDOMINAL PAIN UPPER
  7. IBUPROFEN. [Concomitant]
     Active Substance: IBUPROFEN
     Indication: PAIN
  8. MAGNESIUM HYDROXIDE. [Concomitant]
     Active Substance: MAGNESIUM HYDROXIDE
  9. ZANTAC [Concomitant]
     Active Substance: RANITIDINE HYDROCHLORIDE
  10. ALKA-SELTZER [Concomitant]
     Active Substance: ANHYDROUS CITRIC ACID\ASPIRIN\SODIUM BICARBONATE
  11. NEXIUM [Suspect]
     Active Substance: ESOMEPRAZOLE MAGNESIUM
     Indication: GASTROOESOPHAGEAL REFLUX DISEASE
     Route: 048
  12. PREVACID [Suspect]
     Active Substance: LANSOPRAZOLE
     Indication: GASTROOESOPHAGEAL REFLUX DISEASE
     Route: 065
     Dates: start: 2015, end: 2018
  13. ASPIRIN. [Concomitant]
     Active Substance: ASPIRIN
  14. TAGAMET [Concomitant]
     Active Substance: CIMETIDINE
  15. MILK OF MAGNESIA [Concomitant]
     Active Substance: MAGNESIUM HYDROXIDE
  16. FUROSEMIDE. [Concomitant]
     Active Substance: FUROSEMIDE
  17. METOPROLOL TARTRATE. [Concomitant]
     Active Substance: METOPROLOL TARTRATE
  18. SERTRALINE [Concomitant]
     Active Substance: SERTRALINE HYDROCHLORIDE
  19. PEPCID [Concomitant]
     Active Substance: FAMOTIDINE
  20. ATORVASTATIN [Concomitant]
     Active Substance: ATORVASTATIN
  21. ARIPIPRAZOLE. [Concomitant]
     Active Substance: ARIPIPRAZOLE
  22. PRILOSEC [Suspect]
     Active Substance: OMEPRAZOLE MAGNESIUM
     Indication: GASTROOESOPHAGEAL REFLUX DISEASE
     Route: 048
     Dates: start: 2015, end: 2018
  23. IRON [Concomitant]
     Active Substance: IRON
  24. DULOXETINE. [Concomitant]
     Active Substance: DULOXETINE
  25. TRAZODONE [Concomitant]
     Active Substance: TRAZODONE HYDROCHLORIDE
  26. AXID [Concomitant]
     Active Substance: NIZATIDINE
  27. CEPHALEXIN. [Concomitant]
     Active Substance: CEPHALEXIN
  28. PEPTO-BISMOL [Concomitant]
     Active Substance: BISMUTH SUBSALICYLATE
     Indication: ABDOMINAL PAIN UPPER
  29. FAMOTIDINE. [Concomitant]
     Active Substance: FAMOTIDINE
  30. CALCIUM CARBONATE. [Concomitant]
     Active Substance: CALCIUM CARBONATE
  31. MAALOX ANTACID [Concomitant]
     Active Substance: ALUMINUM HYDROXIDE\DIMETHICONE\MAGNESIUM HYDROXIDE
  32. NEXIUM [Suspect]
     Active Substance: ESOMEPRAZOLE MAGNESIUM
     Indication: GASTROOESOPHAGEAL REFLUX DISEASE
     Route: 048
     Dates: start: 2015, end: 2018
  33. NEXIUM 24HR [Suspect]
     Active Substance: ESOMEPRAZOLE MAGNESIUM
     Indication: GASTROOESOPHAGEAL REFLUX DISEASE
     Route: 048
     Dates: start: 2015
  34. CENTRUM SILVER [Concomitant]
     Active Substance: MINERALS\VITAMINS
  35. DUEXIS [Concomitant]
     Active Substance: FAMOTIDINE\IBUPROFEN

REACTIONS (7)
  - Chronic kidney disease [Unknown]
  - Bone disorder [Unknown]
  - Renal injury [Unknown]
  - Renal failure [Unknown]
  - Osteoporosis [Unknown]
  - Multiple fractures [Unknown]
  - Rebound acid hypersecretion [Unknown]
